FAERS Safety Report 4569599-9 (Version None)
Quarter: 2005Q1

REPORT INFORMATION
  Report Type: 
  Country: None (occurrence: None)
  Receive Date: 20050201
  Receipt Date: 20050124
  Transmission Date: 20050727
  Serious: Yes (Death)
  Sender: FDA-Public Use
  Company Number: 2005AP00453

PATIENT
  Sex: Male

DRUGS (1)
  1. SEROQUEL [Suspect]
     Dosage: 1600 MG DAILY PO
     Route: 048

REACTIONS (2)
  - NEUTROPENIA [None]
  - RESPIRATORY FAILURE [None]
